FAERS Safety Report 13897946 (Version 2)
Quarter: 2017Q3

REPORT INFORMATION
  Report Type: Spontaneous
  Country: US (occurrence: US)
  Receive Date: 20170823
  Receipt Date: 20170920
  Transmission Date: 20171127
  Serious: Yes (Other)
  Sender: FDA-Public Use
  Company Number: US-GILEAD-2017-0289177

PATIENT
  Age: 60 Year
  Sex: Female
  Weight: 81.81 kg

DRUGS (6)
  1. LISINOPRIL. [Concomitant]
     Active Substance: LISINOPRIL
  2. RANITIDINE. [Concomitant]
     Active Substance: RANITIDINE
  3. JANUVIA [Concomitant]
     Active Substance: SITAGLIPTIN PHOSPHATE
  4. LANTUS [Concomitant]
     Active Substance: INSULIN GLARGINE
  5. GLIPIZIDE. [Concomitant]
     Active Substance: GLIPIZIDE
  6. HARVONI [Suspect]
     Active Substance: LEDIPASVIR\SOFOSBUVIR
     Indication: PRODUCT USED FOR UNKNOWN INDICATION
     Route: 065

REACTIONS (2)
  - Hepatic cirrhosis [Unknown]
  - Alopecia [Unknown]

NARRATIVE: CASE EVENT DATE: 20170404
